FAERS Safety Report 10396048 (Version 1)
Quarter: 2014Q3

REPORT INFORMATION
  Report Type: Spontaneous
  Country: US (occurrence: None)
  Receive Date: 20140815
  Receipt Date: 20140815
  Transmission Date: 20150326
  Serious: No
  Sender: FDA-Public Use
  Company Number: None

PATIENT
  Age: 54 Year
  Sex: Male
  Weight: 65.77 kg

DRUGS (2)
  1. BACTRIM [Suspect]
     Active Substance: SULFAMETHOXAZOLE\TRIMETHOPRIM
     Indication: TONSILLAR HYPERTROPHY
     Dosage: 1 PILL
     Route: 048
     Dates: start: 20140731, end: 20140809
  2. BACTRIM [Suspect]
     Active Substance: SULFAMETHOXAZOLE\TRIMETHOPRIM
     Indication: PHARYNGEAL OEDEMA
     Dosage: 1 PILL
     Route: 048
     Dates: start: 20140731, end: 20140809

REACTIONS (3)
  - Dysgeusia [None]
  - Paraesthesia oral [None]
  - Ageusia [None]

NARRATIVE: CASE EVENT DATE: 20140807
